FAERS Safety Report 4862257-2 (Version None)
Quarter: 2005Q4

REPORT INFORMATION
  Report Type: 
  Country: None (occurrence: None)
  Receive Date: 20051221
  Receipt Date: 20051214
  Transmission Date: 20060501
  Serious: Yes (Hospitalization)
  Sender: FDA-Public Use
  Company Number: JP-AVENTIS-200513821JP

PATIENT
  Age: 51 Year
  Sex: Female

DRUGS (2)
  1. TAXOTERE [Suspect]
     Indication: OVARIAN CANCER
     Route: 041
     Dates: start: 20030101
  2. CARBOPLATIN [Concomitant]
     Indication: OVARIAN CANCER
     Dosage: DOSE: AUC4.5
     Route: 041
     Dates: start: 20030101

REACTIONS (2)
  - IMPAIRED HEALING [None]
  - WOUND DEHISCENCE [None]
